FAERS Safety Report 21902207 (Version 1)
Quarter: 2023Q1

REPORT INFORMATION
  Report Type: Spontaneous
  Country: GB (occurrence: GB)
  Receive Date: 20230124
  Receipt Date: 20230124
  Transmission Date: 20230418
  Serious: Yes (Other)
  Sender: FDA-Public Use
  Company Number: None

PATIENT
  Age: 73 Year
  Sex: Male
  Weight: 88.8 kg

DRUGS (13)
  1. EZETIMIBE [Suspect]
     Active Substance: EZETIMIBE
     Indication: Product used for unknown indication
     Dosage: 10 MILLIGRAM, TABLET
     Route: 065
  2. ALENDRONIC ACID [Concomitant]
     Active Substance: ALENDRONIC ACID
     Indication: Product used for unknown indication
     Dosage: 70 MILLIGRAM, ONCE WEEKLY, TABLET
     Route: 065
     Dates: start: 20221102
  3. ALLOPURINOL [Concomitant]
     Active Substance: ALLOPURINOL
     Indication: Product used for unknown indication
     Dosage: 100 MILLIGRAM, QD, TABLET
     Route: 065
     Dates: start: 20221202
  4. ASPIRIN [Concomitant]
     Active Substance: ASPIRIN
     Indication: Product used for unknown indication
     Dosage: 75 MILLIGRAM, QD, IN THE MORNING (DISPERSIBLE TABLET)
     Route: 065
     Dates: start: 20221202
  5. BISOPROLOL [Concomitant]
     Active Substance: BISOPROLOL
     Indication: Product used for unknown indication
     Dosage: 5 MILLIGRAM, QD, TABLET
     Route: 065
     Dates: start: 20221202
  6. BECLOMETHASONE DIPROPIONATE [Concomitant]
     Active Substance: BECLOMETHASONE DIPROPIONATE
     Indication: Product used for unknown indication
     Dosage: 4 DOSAGE FORM, QD, PUFFS 100 MICROGRAMS/DOSE
     Route: 065
     Dates: start: 20221007
  7. DOXYCYCLINE [Concomitant]
     Active Substance: DOXYCYCLINE
     Indication: Product used for unknown indication
     Dosage: UNK, CAPSULE, 2 IMMEDIATELY D1 THEN 1 EVERY DAY
     Route: 065
     Dates: start: 20221220
  8. HYDROXOCOBALAMIN [Concomitant]
     Active Substance: HYDROXOCOBALAMIN
     Indication: Product used for unknown indication
     Dosage: UNK, ASD 1MG/ML, INJECTION
     Route: 065
     Dates: start: 20221104
  9. ISOSORBIDE MONONITRATE [Concomitant]
     Active Substance: ISOSORBIDE MONONITRATE
     Indication: Product used for unknown indication
     Dosage: 20 MILLIGRAM, QD, TABLET
     Route: 065
     Dates: start: 20221102
  10. ACETAMINOPHEN [Concomitant]
     Active Substance: ACETAMINOPHEN
     Indication: Product used for unknown indication
     Dosage: 4 GRAM, QD, TABLET
     Route: 065
     Dates: start: 20221007
  11. PREDNISOLONE [Concomitant]
     Active Substance: PREDNISOLONE
     Indication: Product used for unknown indication
     Dosage: UNK, TABLET, COURSE OF 6 TABS IN THE MORNING FOR 5 DAYS THEN BACK TO NORMAL DOSE
     Route: 065
     Dates: start: 20221220
  12. CALCIUM CARBONATE\SODIUM ALGINATE\SODIUM BICARBONATE [Concomitant]
     Active Substance: CALCIUM CARBONATE\SODIUM ALGINATE\SODIUM BICARBONATE
     Indication: Product used for unknown indication
     Dosage: 10 MILLILITER, HS AFTER MEALS AND AT BED TIME
     Route: 065
     Dates: start: 20221230
  13. ROSUVASTATIN [Concomitant]
     Active Substance: ROSUVASTATIN
     Indication: Product used for unknown indication
     Dosage: 5 MILLIGRAM, QD, CAPSULE
     Route: 065
     Dates: start: 20221013, end: 20221202

REACTIONS (3)
  - Lip swelling [Recovering/Resolving]
  - Rash [Unknown]
  - Pruritus [Unknown]

NARRATIVE: CASE EVENT DATE: 20221219
